FAERS Safety Report 13350899 (Version 1)
Quarter: 2017Q1

REPORT INFORMATION
  Report Type: Spontaneous
  Country: US (occurrence: US)
  Receive Date: 20170320
  Receipt Date: 20170320
  Transmission Date: 20170429
  Serious: No
  Sender: FDA-Public Use
  Company Number: US-PFIZER INC-2014113669

PATIENT
  Age: 57 Year
  Sex: Female
  Weight: 59.87 kg

DRUGS (42)
  1. LYRICA [Suspect]
     Active Substance: PREGABALIN
     Indication: NEURALGIA
     Dosage: 50 MG, 2X/DAY
     Route: 048
     Dates: start: 20140417
  2. LYRICA [Suspect]
     Active Substance: PREGABALIN
     Dosage: 125 MG, DAILY (50MG 1 CAPSULE IN THE DAYTIME HOURS, 75MG 1 CAPSULE NIGHTLY AT BEDTIME)
     Route: 048
     Dates: start: 20150429
  3. AMITRIPTYLINE [Concomitant]
     Active Substance: AMITRIPTYLINE
     Dosage: 25 MG, UNK (1 AT BEDTIME FOR ONE WEEK, THEN INCREASE TO 2 AT BEDTIME)
  4. SUMATRIPTAN. [Concomitant]
     Active Substance: SUMATRIPTAN
     Indication: MIGRAINE
     Dosage: 100 MG, AS NEEDED (TAKE 1 TABLET BY MOUTH ONCE, 1 DOSE)
     Route: 048
  5. TRAZODONE [Concomitant]
     Active Substance: TRAZODONE HYDROCHLORIDE
     Dosage: 50 MG, 1X/DAY (NIGHTLY)
     Route: 048
  6. ESGIC [Concomitant]
     Active Substance: ACETAMINOPHEN\BUTALBITAL\CAFFEINE
     Indication: HEADACHE
     Dosage: UNK UNK, AS NEEDED (1 TABLET EVERY 4 HOURS) [BUTALBITAL 50MG, PARACETAMOL 325MG,CAFFEINE 40MG]
     Route: 048
  7. VALIUM [Concomitant]
     Active Substance: DIAZEPAM
     Indication: MUSCLE SPASMS
     Dosage: 2 MG, UNK (1 TO 2 AT BEDTIME)
     Route: 048
  8. ZOCOR [Concomitant]
     Active Substance: SIMVASTATIN
     Dosage: 10 MG, 1X/DAY (NIGHTLY AT BEDTIME)
     Route: 048
  9. LYRICA [Suspect]
     Active Substance: PREGABALIN
     Indication: CERVICAL RADICULOPATHY
     Dosage: 50 MG, 2X/DAY
     Route: 048
     Dates: start: 20140508
  10. ALBUTEROL. [Concomitant]
     Active Substance: ALBUTEROL
     Indication: WHEEZING
     Dosage: UNK UNK, AS NEEDED (INHALE 2 PUFFS EVERY 4 HOURS/Q4H PRN ) [108 (90 BASE) MCG/ACT]
     Dates: start: 20131017
  11. TOPIRAMATE. [Concomitant]
     Active Substance: TOPIRAMATE
     Dosage: 50 MG, 2X/DAY
     Route: 048
  12. FIORICET [Concomitant]
     Active Substance: ACETAMINOPHEN\BUTALBITAL\CAFFEINE
     Indication: HEADACHE
     Dosage: 1 DF, AS NEEDED  (TAKE 1 TABLET EVERY 4 HOURS) [BUTALBITAL 50MG, PARACETAMOL 325MG,CAFFEINE 40MG]
     Route: 048
     Dates: start: 20170103
  13. DEXILANT [Concomitant]
     Active Substance: DEXLANSOPRAZOLE
     Indication: ROUTINE HEALTH MAINTENANCE
     Dosage: 60 MG, DAILY (WITH BREAKFAST)
     Route: 048
     Dates: start: 20170217
  14. CLARITIN-D 12 HOUR [Concomitant]
     Active Substance: LORATADINE\PSEUDOEPHEDRINE SULFATE
     Dosage: 1 DF, 2X/DAY  [LORATADINE: 5 MG, PSEUDOEPHEDRINE SULFATE: 120 MG]
     Route: 048
     Dates: start: 20160808
  15. ROXICODONE [Concomitant]
     Active Substance: OXYCODONE HYDROCHLORIDE
     Indication: PAIN
     Dosage: UNK UNK, AS NEEDED (Q8H PRN )
     Route: 048
     Dates: start: 20170207
  16. LYRICA [Suspect]
     Active Substance: PREGABALIN
     Dosage: 75 MG, 2X/DAY
     Route: 048
     Dates: start: 20170217
  17. BENZONATATE. [Concomitant]
     Active Substance: BENZONATATE
     Indication: COUGH
     Dosage: 300 MG, AS NEEDED (100 MG, TAKE 1 CAPSULE; 3 TIMES DAILY)
     Route: 048
  18. BUTALBITAL, ACETAMINOPHEN, AND CAFFEINE [Concomitant]
     Active Substance: ACETAMINOPHEN\BUTALBITAL\CAFFEINE
     Indication: HEADACHE
     Dosage: 1 DF, AS NEEDED (EVERY 4 HOURS) [BUTALBITAL 50MG; PARACETAMOL 325MG; CAFFEINE 40 MG]
     Route: 048
  19. DIAZEPAM. [Concomitant]
     Active Substance: DIAZEPAM
     Indication: MUSCLE SPASMS
     Dosage: 2 MG, UNK (1 TO 2 AT BEDTIME)
     Route: 048
  20. MEDROL DOSEPACK [Concomitant]
     Dosage: 4 MG, UNK (TAKE BY MOUTH FOR 7 DAYS)
     Route: 048
  21. DESYREL [Concomitant]
     Active Substance: TRAZODONE HYDROCHLORIDE
     Dosage: 50 MG, 1X/DAY (NIGHTLY AT BEDTIME)
     Route: 048
     Dates: start: 20170217
  22. PROVENTIL HFA [Concomitant]
     Active Substance: ALBUTEROL SULFATE
     Indication: WHEEZING
     Dosage: UNK UNK, AS NEEDED (INHALE; EVERY 4 HOURS)
  23. OCEAN SALINE NASAL SPRAY [Concomitant]
     Active Substance: SODIUM CHLORIDE
     Indication: RHINITIS
     Dosage: UNK UNK, 2X/DAY (2 SPRAYS)
     Route: 045
     Dates: start: 20140417
  24. VITAMIN B12 [Concomitant]
     Active Substance: CYANOCOBALAMIN
     Dosage: 1 ML, (INJECT 1 ML INTO THE MUSCLE EVERY 30 DAYS)
     Route: 030
     Dates: start: 20160815
  25. LIORESAL [Concomitant]
     Active Substance: BACLOFEN
     Dosage: 10 MG, AS NEEDED (1 TABLET BY MOUTH 2 TIMES DAILY)
     Route: 048
     Dates: start: 20160314
  26. LYRICA [Suspect]
     Active Substance: PREGABALIN
     Dosage: 75 MG, 2X/DAY
     Route: 048
     Dates: start: 20170302, end: 20170307
  27. DEXLANSOPRAZOLE [Concomitant]
     Active Substance: DEXLANSOPRAZOLE
     Dosage: 60 MG, DAILY
     Route: 048
  28. FLAXSEED [Concomitant]
     Active Substance: FLAX SEED
     Dosage: 1000 MG, DAILY
     Route: 048
  29. FLUTICASONE. [Concomitant]
     Active Substance: FLUTICASONE
     Dosage: UNK UNK, DAILY (2 SPRAYS) [50 MCG/ACT]
     Route: 045
  30. LIDOCAINE. [Concomitant]
     Active Substance: LIDOCAINE
     Dosage: UNK UNK, 2X/DAY (INSTRUCTIONS FOR USE: TWO T)
  31. SODIUM CHLORIDE. [Concomitant]
     Active Substance: SODIUM CHLORIDE
     Dosage: UNK UNK, 2X/DAY (2 SPRAYS)
     Route: 045
  32. PROAIR HFA [Concomitant]
     Active Substance: ALBUTEROL SULFATE
     Indication: WHEEZING
     Dosage: UNK UNK, AS NEEDED (INHALE 2 PUFFS EVERY 4 HOURS)
  33. TOPAMAX [Concomitant]
     Active Substance: TOPIRAMATE
     Dosage: 50 MG, 2X/DAY
     Route: 048
     Dates: start: 20170217
  34. LYRICA [Suspect]
     Active Substance: PREGABALIN
     Dosage: 75 MG, DAILY
     Route: 048
  35. OXYCODONE AND ACETAMINOPHEN [Concomitant]
     Active Substance: ACETAMINOPHEN\OXYCODONE HYDROCHLORIDE
     Indication: PAIN
     Dosage: 1 DF, AS NEEDED (EVERY 6 HOURS) [OXYCODONE HYDROCHLORIDE: 5MG, PARACETAMOL: 325 MG]
     Route: 048
  36. MONTELUKAST [Concomitant]
     Active Substance: MONTELUKAST SODIUM
     Dosage: 10 MG, 1X/DAY (1 TABLET NIGHTLY)
     Route: 048
  37. PERCOCET [Concomitant]
     Active Substance: ACETAMINOPHEN\OXYCODONE HYDROCHLORIDE
     Indication: PAIN
     Dosage: 1 DF, AS NEEDED (EVERY 6 HOURS) [OXYCODONE HYDROCHLORIDE: 5MG, PARACETAMOL: 325 MG]
     Route: 048
  38. IMITREX [Concomitant]
     Active Substance: SUMATRIPTAN SUCCINATE
     Indication: MIGRAINE
     Dosage: 100 MG, AS NEEDED (TAKE 1 TABLET BY MOUTH ONCE, 1 DOSE)
     Route: 048
  39. VENTOLIN HFA [Concomitant]
     Active Substance: ALBUTEROL SULFATE
     Indication: WHEEZING
     Dosage: UNK UNK, AS NEEDED (INHALE 2 PUFFS EVERY 4 HOURS) [108 (90 BASE) MCG/ACT]
  40. AZELASTINE [Concomitant]
     Active Substance: AZELASTINE
     Dosage: 4 DF, 2X/DAY (2 SPRAYS) [137 MCG/SPRAY]
     Route: 045
  41. FLONASE [Concomitant]
     Active Substance: FLUTICASONE PROPIONATE
     Dosage: UNK UNK, DAILY (2SPRAYS IN EACH NOSTRIL) [50 MCG/ACT]
     Route: 045
     Dates: start: 20170226
  42. DESYREL [Concomitant]
     Active Substance: TRAZODONE HYDROCHLORIDE
     Dosage: 100 MG, 1X/DAY (TAKE 2 TABLET BY MOUTH NIGHTLY AT BEDTIME)
     Route: 048
     Dates: start: 20170217

REACTIONS (14)
  - Withdrawal syndrome [Unknown]
  - Decreased appetite [Recovering/Resolving]
  - Chills [Recovered/Resolved]
  - Abdominal pain upper [Not Recovered/Not Resolved]
  - Drug dose omission [Unknown]
  - Feeling abnormal [Recovering/Resolving]
  - Hot flush [Recovered/Resolved]
  - Vertigo [Recovering/Resolving]
  - Diarrhoea [Recovering/Resolving]
  - Weight decreased [Unknown]
  - Fatigue [Unknown]
  - Intentional product misuse [Unknown]
  - Headache [Recovering/Resolving]
  - Hyperhidrosis [Recovered/Resolved]

NARRATIVE: CASE EVENT DATE: 20170308
